FAERS Safety Report 5343888-2 (Version None)
Quarter: 2007Q2

REPORT INFORMATION
  Report Type: 
  Country: None (occurrence: None)
  Receive Date: 20070531
  Receipt Date: 20070516
  Transmission Date: 20071010
  Serious: Yes (Other)
  Sender: FDA-Public Use
  Company Number: 2007US-07506

PATIENT
  Age: 17 Year
  Sex: Female

DRUGS (1)
  1. ISOTRETINOIN [Suspect]
     Indication: ACNE
     Dates: start: 20061101, end: 20070301

REACTIONS (5)
  - ALOPECIA [None]
  - ANAEMIA [None]
  - ARTHRITIS [None]
  - LIVER FUNCTION TEST ABNORMAL [None]
  - LUPUS-LIKE SYNDROME [None]
